FAERS Safety Report 10010327 (Version 1)
Quarter: 2014Q1

REPORT INFORMATION
  Report Type: Spontaneous
  Country: US (occurrence: US)
  Receive Date: 20140314
  Receipt Date: 20140314
  Transmission Date: 20141002
  Serious: No
  Sender: FDA-Public Use
  Company Number: US-009507513-1403USA003892

PATIENT
  Age: 72 Year
  Sex: Female

DRUGS (2)
  1. ZOCOR [Suspect]
     Dosage: 80 MG, UNK, 80MG/FREQUENCY UNSPECIFIED
     Route: 048
  2. SIMVASTATIN TABLETS, USP [Suspect]
     Route: 048

REACTIONS (3)
  - Drug ineffective [Unknown]
  - Drug dose omission [Unknown]
  - No adverse event [Unknown]
